FAERS Safety Report 6238383-2 (Version None)
Quarter: 2009Q2

REPORT INFORMATION
  Report Type: 
  Country: None (occurrence: None)
  Receive Date: 20090622
  Receipt Date: 20090610
  Transmission Date: 20091009
  Serious: Yes (Hospitalization)
  Sender: FDA-Public Use
  Company Number: US-BIOGENIDEC-2009BI012333

PATIENT
  Sex: Male
  Weight: 88 kg

DRUGS (7)
  1. AVONEX [Suspect]
     Indication: MULTIPLE SCLEROSIS
     Route: 030
     Dates: start: 20081101
  2. BENICAR HCT [Concomitant]
     Indication: HYPERTENSION
  3. CRESTOR [Concomitant]
     Indication: HYPERCHOLESTEROLAEMIA
  4. FOLIC ACID [Concomitant]
     Indication: BLOOD FOLATE DECREASED
  5. NEURONTIN [Concomitant]
     Indication: ARTHRALGIA
  6. NALTREXONE HYDROCHLORIDE [Concomitant]
     Indication: DRUG USE FOR UNKNOWN INDICATION
     Dates: start: 20090422
  7. XANAX [Concomitant]
     Indication: ANXIETY

REACTIONS (8)
  - ABASIA [None]
  - ARTHRALGIA [None]
  - CEREBRAL CALCIFICATION [None]
  - DEPRESSION [None]
  - DYSSTASIA [None]
  - INFLUENZA LIKE ILLNESS [None]
  - MOBILITY DECREASED [None]
  - MULTIPLE SCLEROSIS RELAPSE [None]
